FAERS Safety Report 24942019 (Version 1)
Quarter: 2025Q1

REPORT INFORMATION
  Report Type: Spontaneous
  Country: PL (occurrence: PL)
  Receive Date: 20250207
  Receipt Date: 20250207
  Transmission Date: 20250409
  Serious: Yes (Other)
  Sender: RECORDATI
  Company Number: PL-RECORDATI RARE DISEASE INC.-2025000725

PATIENT

DRUGS (7)
  1. PASIREOTIDE [Suspect]
     Active Substance: PASIREOTIDE
     Indication: Pituitary tumour benign
     Route: 030
  2. PASIREOTIDE [Suspect]
     Active Substance: PASIREOTIDE
     Indication: Pituitary-dependent Cushing^s syndrome
     Route: 030
  3. PASIREOTIDE [Suspect]
     Active Substance: PASIREOTIDE
     Route: 030
  4. OSILODROSTAT [Suspect]
     Active Substance: OSILODROSTAT
     Indication: Pituitary tumour benign
     Dosage: 1 MILLIGRAM, BID
  5. OSILODROSTAT [Suspect]
     Active Substance: OSILODROSTAT
     Indication: Pituitary-dependent Cushing^s syndrome
  6. CABERGOLINE [Suspect]
     Active Substance: CABERGOLINE
     Indication: Pituitary tumour benign
     Dosage: 2 MILLIGRAM, QW
  7. CABERGOLINE [Suspect]
     Active Substance: CABERGOLINE
     Indication: Pituitary-dependent Cushing^s syndrome

REACTIONS (4)
  - Diabetes mellitus [Unknown]
  - Weight decreased [Unknown]
  - Disease progression [Recovered/Resolved]
  - Therapeutic product effect incomplete [Recovered/Resolved]
